FAERS Safety Report 9728680 (Version 2)
Quarter: 2013Q4

REPORT INFORMATION
  Report Type: Spontaneous
  Country: US (occurrence: US)
  Receive Date: 20131204
  Receipt Date: 20131226
  Transmission Date: 20140711
  Serious: No
  Sender: FDA-Public Use
  Company Number: US-PFIZER INC-2013341056

PATIENT
  Age: 56 Year
  Sex: 0

DRUGS (6)
  1. NORVASC [Suspect]
     Dosage: UNK
  2. IBUPROFEN [Suspect]
     Dosage: UNK
  3. CODEINE [Suspect]
     Dosage: UNK
  4. DARVOCET [Suspect]
     Dosage: UNK
  5. DEMEROL [Suspect]
     Dosage: UNK
  6. TORADOL [Suspect]
     Dosage: UNK

REACTIONS (1)
  - Drug hypersensitivity [Unknown]
